FAERS Safety Report 13038026 (Version 1)
Quarter: 2016Q4

REPORT INFORMATION
  Report Type: Spontaneous
  Country: US (occurrence: US)
  Receive Date: 20161213
  Receipt Date: 20161213
  Transmission Date: 20170207
  Serious: No
  Sender: FDA-Public Use
  Company Number: None

PATIENT
  Age: 73 Year
  Sex: Female

DRUGS (1)
  1. TELMISAR/HCT TAB [Suspect]
     Active Substance: HYDROCHLOROTHIAZIDE\TELMISARTAN
     Route: 048

REACTIONS (3)
  - Product substitution issue [None]
  - Blood pressure increased [None]
  - Product quality issue [None]

NARRATIVE: CASE EVENT DATE: 20161212
